FAERS Safety Report 5239827-5 (Version None)
Quarter: 2007Q1

REPORT INFORMATION
  Report Type: 
  Country: None (occurrence: None)
  Receive Date: 20070214
  Receipt Date: 20070214
  Transmission Date: 20070707
  Serious: Yes (Hospitalization)
  Sender: FDA-Public Use
  Company Number: None

PATIENT
  Age: 20 Year
  Sex: Male
  Weight: 152.4086 kg

DRUGS (3)
  1. VANCOMYCIN HYDROCHLORIDE [Suspect]
     Indication: DEVICE RELATED INFECTION
     Dosage: 2GM  Q12H  IV
     Route: 042
     Dates: start: 20070125, end: 20070206
  2. VANCOMYCIN HYDROCHLORIDE [Suspect]
     Indication: STAPHYLOCOCCAL INFECTION
     Dosage: 2GM  Q12H  IV
     Route: 042
     Dates: start: 20070125, end: 20070206
  3. VANCOMYCIN HYDROCHLORIDE [Suspect]

REACTIONS (4)
  - CHILLS [None]
  - DERMATITIS EXFOLIATIVE [None]
  - DRUG HYPERSENSITIVITY [None]
  - PYREXIA [None]
